FAERS Safety Report 7846779-8 (Version None)
Quarter: 2011Q4

REPORT INFORMATION
  Report Type: 
  Country: None (occurrence: None)
  Receive Date: 20111025
  Receipt Date: 20111020
  Transmission Date: 20120403
  Serious: Yes (Other)
  Sender: FDA-Public Use
  Company Number: PHHY2011AR66662

PATIENT
  Sex: Male

DRUGS (4)
  1. CLOZAPINE [Suspect]
     Indication: PSYCHOTIC DISORDER
     Dosage: 375 MG, DAILY
     Dates: start: 20100901
  2. QUETIAPINE [Concomitant]
  3. DIVALPROEX SODIUM [Concomitant]
  4. CHLORPROMAZINE [Concomitant]

REACTIONS (4)
  - EMOTIONAL DISORDER [None]
  - FRONTOTEMPORAL DEMENTIA [None]
  - PETIT MAL EPILEPSY [None]
  - HAEMATOMA [None]
